FAERS Safety Report 11948644 (Version 1)
Quarter: 2016Q1

REPORT INFORMATION
  Report Type: Report from Study
  Country: JP (occurrence: JP)
  Receive Date: 20160125
  Receipt Date: 20160125
  Transmission Date: 20160526
  Serious: Yes (Hospitalization)
  Sender: FDA-Public Use
  Company Number: JP-JNJFOC-20140201371

PATIENT
  Age: 85 Year
  Sex: Male
  Weight: 78 kg

DRUGS (9)
  1. XARELTO [Suspect]
     Active Substance: RIVAROXABAN
     Indication: CEREBROVASCULAR ACCIDENT PROPHYLAXIS
     Route: 048
     Dates: start: 20130128, end: 20151228
  2. MICARDIS [Concomitant]
     Active Substance: TELMISARTAN
     Route: 048
  3. NEXIUM [Concomitant]
     Active Substance: ESOMEPRAZOLE MAGNESIUM
     Route: 048
  4. ZACRAS [Concomitant]
     Route: 048
  5. XARELTO [Suspect]
     Active Substance: RIVAROXABAN
     Indication: THROMBOSIS PROPHYLAXIS
     Route: 048
     Dates: start: 20130128, end: 20151228
  6. HERBESSER [Concomitant]
     Active Substance: DILTIAZEM HYDROCHLORIDE
     Route: 048
  7. XARELTO [Suspect]
     Active Substance: RIVAROXABAN
     Indication: ATRIAL FIBRILLATION
     Route: 048
     Dates: start: 20130128, end: 20151228
  8. FERROUS CITRATE [Concomitant]
     Active Substance: FERROUS CITRATE
     Route: 048
     Dates: start: 20130828
  9. PANALDINE [Concomitant]
     Active Substance: TICLOPIDINE HYDROCHLORIDE
     Route: 048

REACTIONS (2)
  - Ischaemic stroke [Recovering/Resolving]
  - Gastric cancer [Recovered/Resolved]

NARRATIVE: CASE EVENT DATE: 20130924
